FAERS Safety Report 8807271 (Version 1)
Quarter: 2012Q4

REPORT INFORMATION
  Report Type: 
  Country: US (occurrence: US)
  Receive Date: 20120925
  Receipt Date: 20120925
  Transmission Date: 20130627
  Serious: Yes (Other)
  Sender: FDA-Public Use
  Company Number: CHPA2012US019976

PATIENT
  Age: 65 Year
  Sex: Female

DRUGS (4)
  1. BENEFIBER W/ WHEAT DEXTRIN [Suspect]
     Indication: CONSTIPATION
     Dosage: 1 TSP, QD
     Route: 048
  2. BENEFIBER W/ WHEAT DEXTRIN [Suspect]
     Dosage: 2 TSP, QD
     Route: 048
  3. ALLEGRA [Concomitant]
     Dosage: Unk, Unk
  4. FLONASE [Concomitant]
     Dosage: Unk, Unk
     Dates: start: 20120917

REACTIONS (6)
  - Diverticulum [Not Recovered/Not Resolved]
  - Lactose intolerance [Not Recovered/Not Resolved]
  - Vision blurred [Not Recovered/Not Resolved]
  - Abdominal discomfort [Recovered/Resolved]
  - Off label use [Unknown]
  - Underdose [Unknown]
